FAERS Safety Report 23552914 (Version 1)
Quarter: 2024Q1

REPORT INFORMATION
  Report Type: Spontaneous
  Country: US (occurrence: US)
  Receive Date: 20240222
  Receipt Date: 20240222
  Transmission Date: 20240409
  Serious: Yes (Hospitalization)
  Sender: FDA-Public Use
  Company Number: US-MYLANLABS-2024M1016099

PATIENT
  Age: 35 Year
  Sex: Male

DRUGS (1)
  1. METHOTREXATE [Suspect]
     Active Substance: METHOTREXATE
     Indication: B-cell type acute leukaemia
     Dosage: UNK
     Route: 037

REACTIONS (6)
  - Toxicity to various agents [Recovering/Resolving]
  - Delirium [Recovering/Resolving]
  - Agitation [Recovering/Resolving]
  - Abnormal behaviour [Recovering/Resolving]
  - Irritability [Recovering/Resolving]
  - Disorientation [Recovering/Resolving]
